FAERS Safety Report 11230752 (Version 1)
Quarter: 2015Q2

REPORT INFORMATION
  Report Type: Spontaneous
  Country: US (occurrence: None)
  Receive Date: 20150629
  Receipt Date: 20150629
  Transmission Date: 20150821
  Serious: Yes (Life-Threatening, Disabling, Other)
  Sender: FDA-Public Use
  Company Number: None

PATIENT
  Age: 22 Year
  Sex: Female
  Weight: 68.04 kg

DRUGS (1)
  1. ALKA-SELTZER HEARTBURN RELIEFCHEWS [Suspect]
     Active Substance: CALCIUM CARBONATE
     Indication: DYSPEPSIA
     Dates: end: 20150627

REACTIONS (5)
  - Asthma [None]
  - Ear discomfort [None]
  - Pharyngeal oedema [None]
  - Throat irritation [None]
  - Nasal congestion [None]

NARRATIVE: CASE EVENT DATE: 20150627
